FAERS Safety Report 9566945 (Version 1)
Quarter: 2013Q3

REPORT INFORMATION
  Report Type: Spontaneous
  Country: US (occurrence: US)
  Receive Date: 20130930
  Receipt Date: 20130930
  Transmission Date: 20140515
  Serious: No
  Sender: FDA-Public Use
  Company Number: US-AMGEN-USASP2012061162

PATIENT
  Age: 60 Year
  Sex: Female

DRUGS (3)
  1. ENBREL [Suspect]
     Indication: RHEUMATOID ARTHRITIS
     Dosage: 50 MG, QWK
     Route: 058
     Dates: start: 201207
  2. METHOTREXATE [Concomitant]
     Dosage: 2.5 MG, UNK
  3. MELOXICAM [Concomitant]
     Dosage: 7.5 MG, UNK

REACTIONS (2)
  - Injection site reaction [Unknown]
  - Injection site erythema [Unknown]
